FAERS Safety Report 26094410 (Version 1)
Quarter: 2025Q4

REPORT INFORMATION
  Report Type: Spontaneous
  Country: US (occurrence: US)
  Receive Date: 20251126
  Receipt Date: 20251126
  Transmission Date: 20260118
  Serious: No
  Sender: PFIZER
  Company Number: US-PFIZER INC-PV202400089377

PATIENT
  Age: 75 Year
  Sex: Female

DRUGS (2)
  1. IBRANCE [Suspect]
     Active Substance: PALBOCICLIB
     Indication: Breast cancer metastatic
     Dosage: 125 MG, CYCLIC (1 TABLET ONCE DAILY DAYS 1-21 (3 WEEKS ON, 1 WEEK OFF))
     Route: 048
  2. IBRANCE [Suspect]
     Active Substance: PALBOCICLIB
     Dosage: 100 MG, CYCLIC (1 TABLET (100 MG) ONCE DAILY. DAYS 1-21 OF EACH 28 DAY CYCLE. (3 WEEKS ON, 1 WEEK)
     Route: 048

REACTIONS (1)
  - Stomatitis [Unknown]
